FAERS Safety Report 20816474 (Version 2)
Quarter: 2023Q1

REPORT INFORMATION
  Report Type: Spontaneous
  Country: US (occurrence: US)
  Receive Date: 20220512
  Receipt Date: 20230118
  Transmission Date: 20230417
  Serious: No
  Sender: FDA-Public Use
  Company Number: US-CELGENE-USA-20210703648

PATIENT
  Age: 38 Year
  Sex: Male

DRUGS (3)
  1. ZEPOSIA [Suspect]
     Active Substance: OZANIMOD HYDROCHLORIDE
     Indication: Multiple sclerosis
     Dosage: STARTER KIT (UNKNOWN)
     Route: 048
     Dates: start: 20210710
  2. ZEPOSIA [Suspect]
     Active Substance: OZANIMOD HYDROCHLORIDE
     Dosage: DAILY
     Route: 048
     Dates: start: 202107
  3. ZEPOSIA [Suspect]
     Active Substance: OZANIMOD HYDROCHLORIDE
     Dosage: DAILY
     Route: 048
     Dates: start: 202108

REACTIONS (4)
  - Fatigue [Unknown]
  - Diarrhoea [Unknown]
  - Gastric disorder [Unknown]
  - Multiple sclerosis relapse [Unknown]
